FAERS Safety Report 6923614-3 (Version None)
Quarter: 2010Q3

REPORT INFORMATION
  Report Type: 
  Country: None (occurrence: None)
  Receive Date: 20100813
  Receipt Date: 20100805
  Transmission Date: 20110219
  Serious: Yes (Hospitalization)
  Sender: FDA-Public Use
  Company Number: A0875596A

PATIENT
  Age: 66 Year
  Sex: Male

DRUGS (2)
  1. AVANDIA [Suspect]
     Route: 048
     Dates: start: 20050413, end: 20061201
  2. AVANDAMET [Suspect]
     Dosage: 2MG TWICE PER DAY
     Route: 048
     Dates: start: 20041122, end: 20050601

REACTIONS (7)
  - ASTHENIA [None]
  - CARDIAC FAILURE CONGESTIVE [None]
  - CEREBROVASCULAR ACCIDENT [None]
  - FATIGUE [None]
  - MONOPLEGIA [None]
  - PAIN [None]
  - TRANSIENT ISCHAEMIC ATTACK [None]
